FAERS Safety Report 6348206-9 (Version None)
Quarter: 2009Q3

REPORT INFORMATION
  Report Type: 
  Country: None (occurrence: None)
  Receive Date: 20090908
  Receipt Date: 20090828
  Transmission Date: 20100115
  Serious: Yes (Disabling)
  Sender: FDA-Public Use
  Company Number: OSCN-NO-0909S-0419

PATIENT
  Age: 65 Year
  Sex: Female

DRUGS (4)
  1. OMNISCAN [Suspect]
     Indication: VASCULAR GRAFT
     Dosage: 20 ML, SINGLE DOSE, I.V.; 20 ML, SINGLE DOSE, I.V.; 20 ML, SINGLE DOSE, I.V.
     Route: 042
     Dates: start: 20060405, end: 20060405
  2. OMNISCAN [Suspect]
     Indication: VASCULAR GRAFT
     Dosage: 20 ML, SINGLE DOSE, I.V.; 20 ML, SINGLE DOSE, I.V.; 20 ML, SINGLE DOSE, I.V.
     Route: 042
     Dates: start: 20060508, end: 20060508
  3. OMNISCAN [Suspect]
     Indication: VASCULAR GRAFT
     Dosage: 20 ML, SINGLE DOSE, I.V.; 20 ML, SINGLE DOSE, I.V.; 20 ML, SINGLE DOSE, I.V.
     Route: 042
     Dates: start: 20070109, end: 20070109
  4. GADOPENTETATE DIMEGLUMINE (MAGNEVIST) [Concomitant]

REACTIONS (1)
  - NEPHROGENIC SYSTEMIC FIBROSIS [None]
